FAERS Safety Report 8997916 (Version 1)
Quarter: 2013Q1

REPORT INFORMATION
  Report Type: Spontaneous
  Country: US (occurrence: US)
  Receive Date: 20130104
  Receipt Date: 20130104
  Transmission Date: 20140127
  Serious: No
  Sender: FDA-Public Use
  Company Number: US-ASTRAZENECA-2012SE96562

PATIENT
  Age: 58 Year
  Sex: Female
  Weight: 62.6 kg

DRUGS (3)
  1. PULMICORT FLEXHALER [Suspect]
     Indication: CHRONIC OBSTRUCTIVE PULMONARY DISEASE
     Dosage: 2 PUFFS
     Route: 055
     Dates: start: 20121220, end: 20121223
  2. PULMICORT FLEXHALER [Suspect]
     Indication: BRONCHITIS CHRONIC
     Dosage: 2 PUFFS
     Route: 055
     Dates: start: 20121220, end: 20121223
  3. SPIRIVA [Suspect]
     Route: 065

REACTIONS (1)
  - Chromaturia [Recovered/Resolved]
